FAERS Safety Report 5066589-7 (Version None)
Quarter: 2006Q3

REPORT INFORMATION
  Report Type: 
  Country: None (occurrence: None)
  Receive Date: 20060801
  Receipt Date: 20060529
  Transmission Date: 20061208
  Serious: Yes (Hospitalization)
  Sender: FDA-Public Use
  Company Number: ES-AMGEN-UK181077

PATIENT
  Sex: Male
  Weight: 75 kg

DRUGS (1)
  1. NEUPOGEN [Suspect]
     Indication: PERIPHERAL BLOOD STEM CELL APHERESIS
     Route: 058
     Dates: start: 20060428, end: 20060529

REACTIONS (1)
  - FACIAL PALSY [None]
